FAERS Safety Report 9566776 (Version 1)
Quarter: 2013Q3

REPORT INFORMATION
  Report Type: Spontaneous
  Country: US (occurrence: US)
  Receive Date: 20130930
  Receipt Date: 20130930
  Transmission Date: 20140515
  Serious: No
  Sender: FDA-Public Use
  Company Number: US-AMGEN-USASP2012067360

PATIENT
  Sex: Female

DRUGS (6)
  1. ENBREL [Suspect]
     Dosage: 50 MG, QWK
  2. METHOTREXATE [Concomitant]
     Dosage: 2.5 MG, UNK
  3. CYMBALTA [Concomitant]
     Dosage: 20 MG, UNK
  4. FOLIC ACID [Concomitant]
  5. DEXILANT [Concomitant]
     Dosage: 30 MG, DR
  6. PREDNISONE [Concomitant]
     Dosage: 10 MG, UNK

REACTIONS (1)
  - Therapeutic response decreased [Unknown]
